FAERS Safety Report 8209500-X (Version None)
Quarter: 2012Q1

REPORT INFORMATION
  Report Type: 
  Country: None (occurrence: None)
  Receive Date: 20120314
  Receipt Date: 20120306
  Transmission Date: 20120608
  Serious: Yes (Hospitalization, Other)
  Sender: FDA-Public Use
  Company Number: ZA-ABBOTT-12P-143-0912569-00

PATIENT
  Sex: Female

DRUGS (7)
  1. DIFLUCAN [Suspect]
     Indication: WOUND SEPSIS
     Dates: start: 20120101
  2. VANCOMYCIN [Suspect]
     Indication: WOUND SEPSIS
     Dates: start: 20120101
  3. LEVOTHYROXINE SODIUM [Concomitant]
     Indication: HYPOTHYROIDISM
     Route: 048
  4. LOSARTAN POTASSIUM AND HYDROCHLOROTHIAZIDE [Concomitant]
     Indication: HYPERTENSION
     Route: 048
  5. HUMIRA [Suspect]
     Indication: RHEUMATOID ARTHRITIS
     Route: 058
     Dates: start: 20110601
  6. PULMISON [Concomitant]
     Indication: RHEUMATOID ARTHRITIS
     Route: 048
  7. SULFASALAZINE [Concomitant]
     Indication: RHEUMATOID ARTHRITIS
     Route: 048

REACTIONS (10)
  - DISLOCATION OF VERTEBRA [None]
  - SKIN REACTION [None]
  - WHITE BLOOD CELL COUNT INCREASED [None]
  - WOUND NECROSIS [None]
  - MIGRAINE [None]
  - BACK PAIN [None]
  - WOUND SEPSIS [None]
  - ADVERSE DRUG REACTION [None]
  - C-REACTIVE PROTEIN INCREASED [None]
  - BACK INJURY [None]
